FAERS Safety Report 5711242-7 (Version None)
Quarter: 2008Q2

REPORT INFORMATION
  Report Type: 
  Country: None (occurrence: None)
  Receive Date: 20080421
  Receipt Date: 20080421
  Transmission Date: 20081010
  Serious: Yes (Other)
  Sender: FDA-Public Use
  Company Number: None

PATIENT
  Age: 43 Year
  Sex: Female
  Weight: 78.0187 kg

DRUGS (2)
  1. HEPARIN [Suspect]
     Indication: THROMBOSIS PROPHYLAXIS
     Dosage: IM
     Route: 030
     Dates: start: 20060831, end: 20060831
  2. HEPARIN [Suspect]
     Indication: THROMBOSIS PROPHYLAXIS
     Dosage: IM
     Route: 030
     Dates: start: 20071113, end: 20071113

REACTIONS (9)
  - DRUG INEFFECTIVE [None]
  - IRRITABILITY [None]
  - MALAISE [None]
  - NIGHTMARE [None]
  - NODULE [None]
  - PAIN OF SKIN [None]
  - SKIN DISORDER [None]
  - URTICARIA [None]
  - VOMITING [None]
